FAERS Safety Report 10180559 (Version 1)
Quarter: 2014Q2

REPORT INFORMATION
  Report Type: Spontaneous
  Country: US (occurrence: US)
  Receive Date: 20140519
  Receipt Date: 20140519
  Transmission Date: 20141212
  Serious: No
  Sender: FDA-Public Use
  Company Number: US-AMGEN INC.-USASP2014003432

PATIENT
  Age: 40 Year
  Sex: Male

DRUGS (2)
  1. PROLIA [Suspect]
     Indication: OSTEOPOROSIS
     Dosage: UNK
     Route: 065
     Dates: start: 2013
  2. TESTOSTERONE [Concomitant]

REACTIONS (2)
  - Irritability [Unknown]
  - Insomnia [Unknown]
